FAERS Safety Report 25077585 (Version 1)
Quarter: 2025Q1

REPORT INFORMATION
  Report Type: Spontaneous
  Country: PL (occurrence: PL)
  Receive Date: 20250314
  Receipt Date: 20250314
  Transmission Date: 20250409
  Serious: Yes (Other)
  Sender: AUROBINDO
  Company Number: PL-URPL-DML-MLP.4401.1.1222.2021

PATIENT
  Age: 47 Year
  Sex: Female
  Weight: 60 kg

DRUGS (1)
  1. CARBOPLATIN [Suspect]
     Active Substance: CARBOPLATIN
     Indication: Ovarian cancer
     Route: 042
     Dates: start: 20210127

REACTIONS (2)
  - Erythema [Unknown]
  - Dyspnoea [Unknown]

NARRATIVE: CASE EVENT DATE: 20210127
